FAERS Safety Report 5390563-4 (Version None)
Quarter: 2007Q3

REPORT INFORMATION
  Report Type: 
  Country: None (occurrence: None)
  Receive Date: 20070718
  Receipt Date: 20070430
  Transmission Date: 20080115
  Serious: No
  Sender: FDA-Public Use
  Company Number: US-KINGPHARMUSA00001-K200700535

PATIENT

DRUGS (1)
  1. LEVOXYL [Suspect]
     Indication: HYPOTHYROIDISM
     Dosage: 50 MCG, QD
     Route: 048
     Dates: start: 20061001, end: 20070301

REACTIONS (4)
  - DRUG EFFECT INCREASED [None]
  - INCORRECT DOSE ADMINISTERED [None]
  - LABORATORY TEST ABNORMAL [None]
  - THYROXINE INCREASED [None]
